FAERS Safety Report 21423730 (Version 2)
Quarter: 2022Q4

REPORT INFORMATION
  Report Type: Report from Study
  Country: HK (occurrence: None)
  Receive Date: 20221007
  Receipt Date: 20221019
  Transmission Date: 20230113
  Serious: Yes (Hospitalization)
  Sender: FDA-Public Use
  Company Number: HK-Merck Healthcare KGaA-9355445

PATIENT
  Age: 54 Year
  Sex: Female

DRUGS (4)
  1. REBIF [Suspect]
     Active Substance: INTERFERON BETA-1A
     Indication: Multiple sclerosis
     Route: 058
     Dates: start: 20110901
  2. METFORMIN [Concomitant]
     Active Substance: METFORMIN HYDROCHLORIDE
     Indication: Diabetes mellitus
     Route: 048
  3. LIPITOR [Concomitant]
     Active Substance: ATORVASTATIN CALCIUM
     Indication: Hyperlipidaemia
     Route: 048
  4. RISPERIDONE [Concomitant]
     Active Substance: RISPERIDONE
     Indication: Mental disability
     Dosage: NOCTE PO (PER ORAL)
     Route: 048

REACTIONS (4)
  - Essential hypertension [Recovering/Resolving]
  - Escherichia urinary tract infection [Unknown]
  - Tachycardia [Not Recovered/Not Resolved]
  - Exposure to SARS-CoV-2 [Unknown]

NARRATIVE: CASE EVENT DATE: 20220920
